FAERS Safety Report 13285952 (Version 4)
Quarter: 2017Q2

REPORT INFORMATION
  Report Type: Report from Study
  Country: IL (occurrence: IL)
  Receive Date: 20170301
  Receipt Date: 20170404
  Transmission Date: 20170830
  Serious: Yes (Hospitalization)
  Sender: FDA-Public Use
  Company Number: PHHY2017IL030766

PATIENT
  Age: 21 Year
  Sex: Female
  Weight: 42.6 kg

DRUGS (2)
  1. DABRAFENIB [Suspect]
     Active Substance: DABRAFENIB
     Indication: PERIPHERAL NERVE SHEATH TUMOUR MALIGNANT
     Dosage: UNK
     Route: 048
     Dates: start: 20170126, end: 20170216
  2. TRAMETINIB [Suspect]
     Active Substance: TRAMETINIB
     Indication: PERIPHERAL NERVE SHEATH TUMOUR MALIGNANT
     Dosage: UNK
     Route: 048
     Dates: start: 20170126, end: 20170216

REACTIONS (4)
  - Pain [Recovering/Resolving]
  - Product use in unapproved indication [Unknown]
  - Osteomyelitis [Recovering/Resolving]
  - Erythema [Recovering/Resolving]

NARRATIVE: CASE EVENT DATE: 20170216
